FAERS Safety Report 4971840-5 (Version None)
Quarter: 2006Q2

REPORT INFORMATION
  Report Type: 
  Country: None (occurrence: None)
  Receive Date: 20060407
  Receipt Date: 20060327
  Transmission Date: 20061013
  Serious: Yes (Hospitalization)
  Sender: FDA-Public Use
  Company Number: GXKR2006GB01791

PATIENT
  Age: 78 Year
  Sex: Female

DRUGS (6)
  1. CITALOPRAM HYDROBROMIDE [Suspect]
     Indication: DEPRESSION
     Dosage: 10 MG, ORAL
     Route: 048
     Dates: start: 20060131, end: 20060222
  2. BENDROFLUAZIDE (BENDROFLUMETHIAZIDE) [Suspect]
     Indication: HYPERTENSION
     Dosage: 2.5 MG, ORAL
     Route: 048
     Dates: start: 20051205, end: 20060222
  3. TRIMETHOPRIM [Concomitant]
  4. ATROVENT [Concomitant]
  5. SALBUTAMOL (SALBUTAMOL) [Concomitant]
  6. AMLODIPINE [Concomitant]

REACTIONS (2)
  - CONFUSIONAL STATE [None]
  - HYPONATRAEMIA [None]
